FAERS Safety Report 7913755-6 (Version None)
Quarter: 2011Q4

REPORT INFORMATION
  Report Type: 
  Country: None (occurrence: None)
  Receive Date: 20111115
  Receipt Date: 20111107
  Transmission Date: 20120403
  Serious: Yes (Other)
  Sender: FDA-Public Use
  Company Number: US-BRISTOL-MYERS SQUIBB COMPANY-16218638

PATIENT
  Age: 91 Year
  Sex: Male
  Weight: 69 kg

DRUGS (10)
  1. COUMADIN [Suspect]
     Indication: ATRIAL FIBRILLATION
     Dates: start: 20091001, end: 20101001
  2. DILTIAZEM HCL [Suspect]
     Indication: ATRIAL FIBRILLATION
     Dates: start: 20091001, end: 20101001
  3. MUCOMYST [Concomitant]
  4. VENTOLIN [Concomitant]
  5. MUCOMYST [Suspect]
  6. SIMVASTATIN [Suspect]
  7. PLAVIX [Suspect]
     Dates: start: 20111010
  8. DUONEB [Concomitant]
  9. ASPIRIN [Concomitant]
     Dosage: 1/2 TABS
  10. MULTAQ [Concomitant]

REACTIONS (2)
  - HAEMORRHAGE [None]
  - ATRIAL FIBRILLATION [None]
